FAERS Safety Report 18402414 (Version 4)
Quarter: 2021Q2

REPORT INFORMATION
  Report Type: Spontaneous
  Country: JP (occurrence: JP)
  Receive Date: 20201019
  Receipt Date: 20210621
  Transmission Date: 20210717
  Serious: Yes (Life-Threatening, Hospitalization, Other)
  Sender: FDA-Public Use
  Company Number: JP-ELI_LILLY_AND_COMPANY-JP202009009960

PATIENT
  Age: 80 Year
  Sex: Female
  Weight: 38 kg

DRUGS (58)
  1. DULOXETINE HYDROCHLORIDE. [Suspect]
     Active Substance: DULOXETINE HYDROCHLORIDE
     Indication: BACK PAIN
     Dosage: 40 MG, DAILY
     Route: 048
     Dates: start: 20200626, end: 20200703
  2. DISOPAIN [Concomitant]
     Active Substance: MOFEZOLAC
     Indication: SPINAL COMPRESSION FRACTURE
     Dosage: 75 MG, TID
     Route: 048
     Dates: end: 20200702
  3. CODEINE PHOSPHATE [Concomitant]
     Active Substance: CODEINE PHOSPHATE
     Indication: BACK PAIN
     Dosage: 1.5 G
     Route: 048
     Dates: start: 20200707
  4. REBAMIPIDE [Concomitant]
     Active Substance: REBAMIPIDE
     Dosage: 100 MG, TID
     Route: 048
     Dates: end: 20200703
  5. BISOPROLOL FUMARATE. [Concomitant]
     Active Substance: BISOPROLOL FUMARATE
     Dosage: 2.5 MG
     Route: 048
     Dates: start: 20200707
  6. PREDONINE [Concomitant]
     Active Substance: PREDNISOLONE
     Dosage: 5 MG
     Route: 048
     Dates: start: 20200707
  7. LANSOPRAZOLE. [Concomitant]
     Active Substance: LANSOPRAZOLE
     Dosage: 15 MG
     Route: 048
     Dates: start: 20200707
  8. TARLIGE [Concomitant]
     Active Substance: MIROGABALIN BESYLATE
     Indication: SPINAL COMPRESSION FRACTURE
  9. DISOPAIN [Concomitant]
     Active Substance: MOFEZOLAC
     Indication: BACK PAIN
  10. NORITREN [Concomitant]
     Active Substance: NORTRIPTYLINE HYDROCHLORIDE
     Indication: SPINAL COMPRESSION FRACTURE
     Dosage: 25 MG
     Route: 048
     Dates: end: 20200703
  11. AMITIZA [Concomitant]
     Active Substance: LUBIPROSTONE
     Indication: CONSTIPATION
     Dosage: 24 UG, BID
     Route: 048
     Dates: end: 20200703
  12. THYRADIN S [Concomitant]
     Active Substance: LEVOTHYROXINE SODIUM
     Indication: HYPOTHYROIDISM
     Dosage: 75 UG
     Route: 048
     Dates: end: 20200703
  13. TRIMEBUTINE MALEATE [Concomitant]
     Active Substance: TRIMEBUTINE MALEATE
     Dosage: 100 MG, TID
     Route: 048
     Dates: end: 20200703
  14. DOMPERIDONE [Concomitant]
     Active Substance: DOMPERIDONE
     Dosage: 10 MG, PRN
     Route: 048
     Dates: end: 20200703
  15. PRALIA [Concomitant]
     Active Substance: DENOSUMAB
     Indication: OSTEOPOROSIS
     Route: 058
  16. MIZORIBINE [Concomitant]
     Active Substance: MIZORIBINE
     Indication: RHEUMATOID ARTHRITIS
     Dosage: 25 MG, BID
     Route: 048
     Dates: end: 20200703
  17. RINLAXER [Concomitant]
     Active Substance: CHLORPHENESIN CARBAMATE
     Indication: BACK PAIN
     Dosage: 125 MG, TID
     Route: 048
     Dates: start: 20200707, end: 20200711
  18. LANSOPRAZOLE. [Concomitant]
     Active Substance: LANSOPRAZOLE
     Dosage: 15 MG
     Route: 048
     Dates: end: 20200703
  19. TOCOPHEROL [Concomitant]
     Active Substance: TOCOPHEROL
     Dosage: 200 MG, BID
     Route: 048
     Dates: end: 20200702
  20. TOARASET [Concomitant]
     Active Substance: ACETAMINOPHEN\TRAMADOL HYDROCHLORIDE
     Indication: SPINAL COMPRESSION FRACTURE
     Dosage: 1 DOSAGE FORM
     Route: 048
     Dates: end: 20200702
  21. BISOPROLOL FUMARATE. [Concomitant]
     Active Substance: BISOPROLOL FUMARATE
     Indication: ATRIAL FIBRILLATION
     Dosage: 2.5 MG
     Route: 048
     Dates: end: 20200703
  22. MIZORIBINE [Concomitant]
     Active Substance: MIZORIBINE
     Dosage: 25 MG, BID
     Route: 048
     Dates: start: 20200707
  23. MECOBALAMIN [Concomitant]
     Active Substance: METHYLCOBALAMIN
     Indication: SPINAL COMPRESSION FRACTURE
     Dosage: 500 UG, TID
     Route: 048
     Dates: end: 20200703
  24. TARLIGE [Concomitant]
     Active Substance: MIROGABALIN BESYLATE
     Indication: BACK PAIN
     Dosage: 2.5 MG
     Route: 048
     Dates: end: 20200702
  25. LYRICA [Concomitant]
     Active Substance: PREGABALIN
     Indication: SPINAL COMPRESSION FRACTURE
     Dosage: 25 MG, BID
     Route: 048
     Dates: end: 20200702
  26. LYRICA [Concomitant]
     Active Substance: PREGABALIN
     Indication: BACK PAIN
  27. LIXIANA [Concomitant]
     Active Substance: EDOXABAN TOSYLATE
     Indication: ATRIAL FIBRILLATION
     Dosage: 30 MG
     Route: 048
     Dates: end: 20200703
  28. TELMISARTAN. [Concomitant]
     Active Substance: TELMISARTAN
     Indication: HYPERTENSION
     Dosage: 20 MG
     Route: 048
     Dates: end: 20200703
  29. TELMISARTAN. [Concomitant]
     Active Substance: TELMISARTAN
     Dosage: 20 MG
     Route: 048
     Dates: start: 20200707
  30. SENNOSIDE [SENNOSIDE A+B CALCIUM] [Concomitant]
     Active Substance: SENNOSIDES A AND B
     Dosage: 12 MG, PRN
     Route: 048
     Dates: start: 20200707, end: 20200708
  31. NAUZELIN [Concomitant]
     Active Substance: DOMPERIDONE
     Dosage: 10 MG, BID
     Route: 048
     Dates: end: 20200703
  32. MECOBALAMIN [Concomitant]
     Active Substance: METHYLCOBALAMIN
     Indication: BACK PAIN
     Dosage: 500 UG, TID
     Route: 048
     Dates: start: 20200707, end: 20200714
  33. DULOXETINE HYDROCHLORIDE. [Suspect]
     Active Substance: DULOXETINE HYDROCHLORIDE
     Indication: SPINAL COMPRESSION FRACTURE
  34. TOARASET [Concomitant]
     Active Substance: ACETAMINOPHEN\TRAMADOL HYDROCHLORIDE
     Indication: BACK PAIN
  35. REBAMIPIDE [Concomitant]
     Active Substance: REBAMIPIDE
     Dosage: 100 MG, TID
     Route: 048
     Dates: start: 20200707, end: 20200713
  36. THYRADIN S [Concomitant]
     Active Substance: LEVOTHYROXINE SODIUM
     Dosage: 75 UG
     Route: 048
     Dates: start: 20200707
  37. BISONO [Concomitant]
     Active Substance: BISOPROLOL
     Dosage: 4 MG
     Route: 062
     Dates: start: 20200707, end: 20200708
  38. SENNOSIDE [SENNOSIDE A+B CALCIUM] [Concomitant]
     Active Substance: SENNOSIDES A AND B
     Indication: CONSTIPATION
     Dosage: 12 MG, PRN
     Route: 048
     Dates: end: 20200703
  39. ELCATONIN [Concomitant]
     Active Substance: ELCATONIN
     Indication: OSTEOPOROSIS
     Route: 030
  40. PREDONINE [Concomitant]
     Active Substance: PREDNISOLONE
     Indication: RHEUMATOID ARTHRITIS
     Dosage: 5 MG
     Route: 048
     Dates: end: 20200703
  41. NORITREN [Concomitant]
     Active Substance: NORTRIPTYLINE HYDROCHLORIDE
     Indication: BACK PAIN
     Dosage: 25 MG
     Route: 048
     Dates: start: 20200707
  42. CODEINE PHOSPHATE [Concomitant]
     Active Substance: CODEINE PHOSPHATE
     Indication: SPINAL COMPRESSION FRACTURE
     Dosage: 1.5 G
     Route: 048
     Dates: end: 20200703
  43. AMITIZA [Concomitant]
     Active Substance: LUBIPROSTONE
     Dosage: 24 UG, BID
     Route: 048
     Dates: start: 20200707
  44. ORENCIA [Concomitant]
     Active Substance: ABATACEPT
     Indication: RHEUMATOID ARTHRITIS
     Dosage: UNK
     Route: 058
     Dates: start: 20200626
  45. RINLAXER [Concomitant]
     Active Substance: CHLORPHENESIN CARBAMATE
     Indication: SPINAL COMPRESSION FRACTURE
     Dosage: 125 MG, TID
     Route: 048
     Dates: end: 20200703
  46. TRIMEBUTINE MALEATE [Concomitant]
     Active Substance: TRIMEBUTINE MALEATE
     Dosage: 100 MG, TID
     Route: 048
     Dates: start: 20200707, end: 20200714
  47. TRIAZOLAM. [Concomitant]
     Active Substance: TRIAZOLAM
     Dosage: 0.125 MG
     Route: 048
     Dates: end: 20200703
  48. TRIAZOLAM. [Concomitant]
     Active Substance: TRIAZOLAM
     Dosage: 0.125 MG
     Route: 048
     Dates: start: 20200707
  49. LIMETHASON [DEXAMETHASONE PALMITATE] [Concomitant]
     Indication: RHEUMATOID ARTHRITIS
     Route: 042
  50. LIMAPROST ALFADEX [Concomitant]
     Active Substance: LIMAPROST
     Indication: PERIPHERAL ARTERIAL OCCLUSIVE DISEASE
     Dosage: 5 UG, TID
     Route: 048
     Dates: end: 20200702
  51. LAVIN [Concomitant]
     Dosage: 50 MG, TID
     Route: 048
     Dates: end: 20200702
  52. MAGNESIUM OXIDE. [Concomitant]
     Active Substance: MAGNESIUM OXIDE
     Indication: CONSTIPATION
     Dosage: 1 G, BID
     Route: 048
     Dates: end: 20200703
  53. LIXIANA [Concomitant]
     Active Substance: EDOXABAN TOSYLATE
     Dosage: 30 MG
     Route: 048
     Dates: start: 20200707
  54. AMLODIPINE [Concomitant]
     Active Substance: AMLODIPINE BESYLATE
     Indication: HYPERTENSION
     Dosage: 5 MG
     Route: 048
     Dates: end: 20200703
  55. AMLODIPINE [Concomitant]
     Active Substance: AMLODIPINE BESYLATE
     Dosage: 5 MG
     Route: 048
     Dates: start: 20200707
  56. PROPAFENONE HYDROCHLORIDE. [Concomitant]
     Active Substance: PROPAFENONE HYDROCHLORIDE
     Indication: ATRIAL FIBRILLATION
     Dosage: 150 MG, BID
     Route: 048
     Dates: end: 20200703
  57. BISONO [Concomitant]
     Active Substance: BISOPROLOL
     Indication: ATRIAL FIBRILLATION
     Dosage: 4 MG
     Route: 062
     Dates: end: 20200703
  58. ALPROSTADIL. [Concomitant]
     Active Substance: ALPROSTADIL
     Indication: PERIPHERAL ARTERIAL OCCLUSIVE DISEASE
     Route: 042

REACTIONS (7)
  - Cardiac failure acute [Recovering/Resolving]
  - Blood loss anaemia [Unknown]
  - Decreased appetite [Recovering/Resolving]
  - Off label use [Unknown]
  - Inappropriate antidiuretic hormone secretion [Recovering/Resolving]
  - Malaise [Recovering/Resolving]
  - Ileus [Unknown]

NARRATIVE: CASE EVENT DATE: 20200630
